FAERS Safety Report 20296400 (Version 1)
Quarter: 2022Q1

REPORT INFORMATION
  Report Type: Spontaneous
  Country: FR (occurrence: FR)
  Receive Date: 20220105
  Receipt Date: 20220105
  Transmission Date: 20220423
  Serious: Yes (Death, Other)
  Sender: FDA-Public Use
  Company Number: FR-AFSSAPS-GR20215106

PATIENT
  Age: 59 Year
  Sex: Male

DRUGS (2)
  1. MIRTAZAPINE [Suspect]
     Active Substance: MIRTAZAPINE
     Indication: Intentional overdose
     Dosage: UNK (NP)
     Route: 065
     Dates: start: 20200623, end: 20200623
  2. ALCOHOL [Suspect]
     Active Substance: ALCOHOL
     Indication: Intentional overdose
     Dosage: UNK (NP)
     Route: 065
     Dates: start: 20200623, end: 20200623

REACTIONS (2)
  - Completed suicide [Fatal]
  - Poisoning deliberate [Fatal]

NARRATIVE: CASE EVENT DATE: 20200623
